FAERS Safety Report 9018603 (Version 1)
Quarter: 2013Q1

REPORT INFORMATION
  Report Type: Spontaneous
  Country: US (occurrence: US)
  Receive Date: 20130118
  Receipt Date: 20130118
  Transmission Date: 20140127
  Serious: No
  Sender: FDA-Public Use
  Company Number: US-PFIZER INC-2013018578

PATIENT
  Sex: Female

DRUGS (7)
  1. LIPITOR [Suspect]
     Dosage: UNK
  2. COLESTID [Suspect]
     Dosage: UNK
  3. PRAVASTATIN SODIUM [Suspect]
     Dosage: UNK
  4. VYTORIN [Suspect]
     Dosage: UNK
  5. CRESTOR [Suspect]
     Dosage: UNK
  6. LESCOL [Suspect]
     Dosage: UNK
  7. LIVALO [Suspect]
     Dosage: UNK

REACTIONS (3)
  - Drug ineffective [Unknown]
  - Muscle spasms [Unknown]
  - Arthralgia [Unknown]
